FAERS Safety Report 22204809 (Version 1)
Quarter: 2023Q2

REPORT INFORMATION
  Report Type: Spontaneous
  Country: JP (occurrence: JP)
  Receive Date: 20230413
  Receipt Date: 20230413
  Transmission Date: 20230721
  Serious: Yes (Death)
  Sender: FDA-Public Use
  Company Number: JP-JNJFOC-20230425695

PATIENT
  Age: 56 Year
  Sex: Male
  Weight: 49.5 kg

DRUGS (19)
  1. UPTRAVI [Suspect]
     Active Substance: SELEXIPAG
     Indication: Pulmonary arterial hypertension
     Route: 048
     Dates: start: 20171101, end: 20181120
  2. UPTRAVI [Suspect]
     Active Substance: SELEXIPAG
     Route: 048
     Dates: start: 20181121, end: 20190115
  3. UPTRAVI [Suspect]
     Active Substance: SELEXIPAG
     Route: 048
     Dates: start: 20190116, end: 20200730
  4. NU-LOTAN [Concomitant]
     Active Substance: LOSARTAN POTASSIUM
  5. CALCIUM POLYSTYRENE SULFONATE [Concomitant]
     Active Substance: CALCIUM POLYSTYRENE SULFONATE
  6. DIGOXIN [Concomitant]
     Active Substance: DIGOXIN
  7. EPALRESTAT [Concomitant]
     Active Substance: EPALRESTAT
     Indication: Steroid diabetes
     Dates: end: 20180910
  8. JANUVIA [Concomitant]
     Active Substance: SITAGLIPTIN PHOSPHATE
     Indication: Steroid diabetes
     Dates: end: 20180401
  9. SITAGLIPTIN [Concomitant]
     Active Substance: SITAGLIPTIN
     Indication: Steroid diabetes
     Dates: start: 20180402, end: 20200723
  10. IMURAN [Concomitant]
     Active Substance: AZATHIOPRINE
     Indication: Polymyositis
  11. IMURAN [Concomitant]
     Active Substance: AZATHIOPRINE
     Dates: end: 20200701
  12. RISEDRONATE SODIUM [Concomitant]
     Active Substance: RISEDRONATE SODIUM
     Indication: Prophylaxis
  13. PREDNISOLONE [Concomitant]
     Active Substance: PREDNISOLONE
     Indication: Polymyositis
  14. PREDNISOLONE [Concomitant]
     Active Substance: PREDNISOLONE
  15. PREDNISOLONE [Concomitant]
     Active Substance: PREDNISOLONE
  16. SULFAMETHOXAZOLE\TRIMETHOPRIM [Concomitant]
     Active Substance: SULFAMETHOXAZOLE\TRIMETHOPRIM
     Indication: Prophylaxis
     Dates: end: 20200723
  17. PROGRAF [Concomitant]
     Active Substance: TACROLIMUS
     Dates: start: 20200702, end: 20200708
  18. PROGRAF [Concomitant]
     Active Substance: TACROLIMUS
     Dates: start: 20200709, end: 20200715
  19. PROGRAF [Concomitant]
     Active Substance: TACROLIMUS
     Dates: start: 20200716

REACTIONS (1)
  - Pulmonary arterial hypertension [Fatal]

NARRATIVE: CASE EVENT DATE: 20200801
